FAERS Safety Report 11173112 (Version 1)
Quarter: 2015Q2

REPORT INFORMATION
  Report Type: Spontaneous
  Country: US (occurrence: US)
  Receive Date: 20150608
  Receipt Date: 20150608
  Transmission Date: 20150821
  Serious: No
  Sender: FDA-Public Use
  Company Number: US-TEVA-568506ACC

PATIENT
  Age: 22 Year
  Weight: 81.72 kg

DRUGS (2)
  1. PRENATAL VITAMIN [Concomitant]
     Active Substance: VITAMINS
     Indication: BREAST FEEDING
  2. PLAN B ONE-STEP [Suspect]
     Active Substance: LEVONORGESTREL
     Indication: POST COITAL CONTRACEPTION
     Dosage: 1.5 MILLIGRAM DAILY;
     Route: 048
     Dates: start: 20150526, end: 20150526

REACTIONS (2)
  - Metrorrhagia [Not Recovered/Not Resolved]
  - Menstruation irregular [Recovered/Resolved]

NARRATIVE: CASE EVENT DATE: 20150528
